FAERS Safety Report 7197951-4 (Version None)
Quarter: 2010Q4

REPORT INFORMATION
  Report Type: 
  Country: None (occurrence: None)
  Receive Date: 20101227
  Receipt Date: 20101220
  Transmission Date: 20110411
  Serious: Yes (Hospitalization)
  Sender: FDA-Public Use
  Company Number: DE-ROCHE-748139

PATIENT
  Sex: Male

DRUGS (5)
  1. MYCOPHENOLATE MOFETIL [Suspect]
     Route: 048
     Dates: start: 20090426
  2. TACROLIMUS [Suspect]
     Route: 048
     Dates: start: 20090426
  3. BISOPROLOL [Concomitant]
     Dates: start: 20090427
  4. AMLODIPINE [Concomitant]
  5. PANTOZOL [Concomitant]

REACTIONS (4)
  - CONVULSION [None]
  - HEPATIC NEOPLASM MALIGNANT RECURRENT [None]
  - PLEURAL EFFUSION [None]
  - STATUS EPILEPTICUS [None]
